FAERS Safety Report 9220040 (Version 1)
Quarter: 2013Q2

REPORT INFORMATION
  Report Type: Spontaneous
  Country: FR (occurrence: FR)
  Receive Date: 20130409
  Receipt Date: 20130409
  Transmission Date: 20140414
  Serious: Yes (Hospitalization)
  Sender: FDA-Public Use
  Company Number: FR-ROCHE-1210687

PATIENT
  Age: 81 Year
  Sex: Female

DRUGS (9)
  1. ROCEPHINE [Suspect]
     Indication: PRODUCT USED FOR UNKNOWN INDICATION
     Route: 058
     Dates: start: 20130214, end: 20130220
  2. PREVISCAN [Interacting]
     Indication: PRODUCT USED FOR UNKNOWN INDICATION
     Route: 048
     Dates: end: 20130217
  3. OFLOCET [Interacting]
     Indication: PRODUCT USED FOR UNKNOWN INDICATION
     Route: 048
     Dates: start: 20130214, end: 20130220
  4. CORDARONE [Concomitant]
     Route: 048
  5. COVERSYL [Concomitant]
     Route: 048
  6. ZOLOFT [Concomitant]
     Route: 048
  7. KEPPRA [Concomitant]
     Route: 048
  8. LYRICA [Concomitant]
     Route: 048
  9. IMOVANE [Concomitant]
     Route: 048

REACTIONS (4)
  - Haematuria [Recovered/Resolved]
  - Genital haemorrhage [Recovered/Resolved]
  - International normalised ratio increased [Recovered/Resolved]
  - Drug interaction [Unknown]
